FAERS Safety Report 8391104-X (Version None)
Quarter: 2012Q2

REPORT INFORMATION
  Report Type: 
  Country: None (occurrence: None)
  Receive Date: 20120529
  Receipt Date: 20120521
  Transmission Date: 20120825
  Serious: Yes (Other)
  Sender: FDA-Public Use
  Company Number: US-JNJFOC-20120214413

PATIENT
  Sex: Female
  Weight: 63.5 kg

DRUGS (6)
  1. REMICADE [Suspect]
     Route: 042
     Dates: start: 20120220
  2. VITAMINS NOS [Concomitant]
     Indication: NUTRITIONAL SUPPORT
     Route: 048
     Dates: start: 20020101
  3. PREDNISONE [Concomitant]
     Indication: INFLAMMATION
     Dosage: EVERY OTHER DAY
     Route: 048
     Dates: start: 20040101
  4. SIMVASTATIN [Concomitant]
     Indication: BLOOD CHOLESTEROL
     Route: 048
     Dates: start: 20020101
  5. METHOTREXATE [Concomitant]
     Indication: ARTHRITIS
     Route: 048
     Dates: start: 20040101
  6. REMICADE [Suspect]
     Indication: RHEUMATOID ARTHRITIS
     Dosage: 4 VIALS
     Route: 042
     Dates: start: 20060101

REACTIONS (8)
  - VITAMIN D DEFICIENCY [None]
  - INFECTION [None]
  - HEART RATE INCREASED [None]
  - FOLATE DEFICIENCY [None]
  - ARTHRALGIA [None]
  - DYSPNOEA [None]
  - DRUG INEFFECTIVE [None]
  - BLOOD PRESSURE INCREASED [None]
